FAERS Safety Report 8375853-5 (Version None)
Quarter: 2012Q2

REPORT INFORMATION
  Report Type: 
  Country: None (occurrence: None)
  Receive Date: 20120522
  Receipt Date: 20120517
  Transmission Date: 20120825
  Serious: Yes (Other)
  Sender: FDA-Public Use
  Company Number: US-AMGEN-USASP2012016107

PATIENT
  Age: 60 Year
  Sex: Male
  Weight: 113.38 kg

DRUGS (2)
  1. ORENCIA [Concomitant]
     Dosage: UNK
  2. ENBREL [Suspect]
     Indication: RHEUMATOID ARTHRITIS
     Dosage: 50 MG, QWK
     Route: 058
     Dates: start: 20120127, end: 20120317

REACTIONS (8)
  - STEAL SYNDROME [None]
  - FELTY'S SYNDROME [None]
  - PYREXIA [None]
  - BLOOD DISORDER [None]
  - NEUTROPENIA [None]
  - RHEUMATOID ARTHRITIS [None]
  - HYPERHIDROSIS [None]
  - DRUG EFFECT DECREASED [None]
